FAERS Safety Report 6057995-2 (Version None)
Quarter: 2009Q1

REPORT INFORMATION
  Report Type: 
  Country: None (occurrence: None)
  Receive Date: 20090127
  Receipt Date: 20090112
  Transmission Date: 20090719
  Serious: Yes (Hospitalization)
  Sender: FDA-Public Use
  Company Number: AE 2009-006

PATIENT
  Age: 33 Year
  Sex: Male

DRUGS (3)
  1. FAZACLO ODT [Suspect]
     Indication: SCHIZOPHRENIA, PARANOID TYPE
     Dosage: 325 MG QHS PO
     Route: 048
     Dates: start: 20070110, end: 20081118
  2. RISPERDAL [Concomitant]
  3. COGENTIN [Concomitant]

REACTIONS (4)
  - ABDOMINAL MASS [None]
  - NAUSEA [None]
  - VOMITING [None]
  - WEIGHT DECREASED [None]
